FAERS Safety Report 14349175 (Version 1)
Quarter: 2018Q1

REPORT INFORMATION
  Report Type: Spontaneous
  Country: CN (occurrence: CN)
  Receive Date: 20180104
  Receipt Date: 20180104
  Transmission Date: 20180509
  Serious: Yes (Hospitalization)
  Sender: FDA-Public Use
  Company Number: CN-ACCORD-062458

PATIENT
  Age: 62 Year
  Sex: Female

DRUGS (4)
  1. ANASTROZOLE. [Suspect]
     Active Substance: ANASTROZOLE
     Indication: HER-2 POSITIVE BREAST CANCER
     Dosage: 6 CYCLES
  2. DOCETAXEL. [Suspect]
     Active Substance: DOCETAXEL
     Indication: HER-2 POSITIVE BREAST CANCER
     Dosage: 6 CYCLES
  3. DOXORUBICIN [Suspect]
     Active Substance: DOXORUBICIN
     Indication: HER-2 POSITIVE BREAST CANCER
     Dosage: 6 CYCLES
  4. CYCLOPHOSPHAMIDE/CYCLOPHOSPHAMIDE MONOHYDRATE [Suspect]
     Active Substance: CYCLOPHOSPHAMIDE
     Indication: HER-2 POSITIVE BREAST CANCER
     Dosage: 6 CYCLES

REACTIONS (2)
  - Cardiac failure [Recovered/Resolved]
  - Mitral valve incompetence [Recovered/Resolved]
